FAERS Safety Report 24311561 (Version 3)
Quarter: 2024Q4

REPORT INFORMATION
  Report Type: Spontaneous
  Country: CA (occurrence: CA)
  Receive Date: 20240912
  Receipt Date: 20241220
  Transmission Date: 20250114
  Serious: Yes (Death, Hospitalization, Other)
  Sender: SANDOZ
  Company Number: CA-SANDOZ-SDZ2024CA079516

PATIENT
  Age: 43 Year
  Sex: Male

DRUGS (20)
  1. THYMOCYTE IMMUNE GLOBULIN NOS [Suspect]
     Active Substance: THYMOCYTE IMMUNE GLOBULIN NOS
     Indication: Graft versus host disease in gastrointestinal tract
     Dosage: 2.0 MG/KG
     Route: 065
  2. THYMOCYTE IMMUNE GLOBULIN NOS [Suspect]
     Active Substance: THYMOCYTE IMMUNE GLOBULIN NOS
     Indication: Prophylaxis against graft versus host disease
     Dosage: 2.0 MG/KG
     Route: 065
  3. BUDESONIDE [Suspect]
     Active Substance: BUDESONIDE
     Indication: Graft versus host disease in gastrointestinal tract
     Dosage: UNK
     Route: 065
  4. CYCLOSPORINE [Suspect]
     Active Substance: CYCLOSPORINE
     Indication: Graft versus host disease in gastrointestinal tract
     Dosage: 50 MG/KG
     Route: 065
  5. CYCLOPHOSPHAMIDE [Suspect]
     Active Substance: CYCLOPHOSPHAMIDE
     Indication: Product used for unknown indication
     Dosage: 50 MG/KG
     Route: 065
  6. HYDROCORTISONE ACETATE [Suspect]
     Active Substance: HYDROCORTISONE ACETATE
     Indication: Graft versus host disease in gastrointestinal tract
     Route: 065
  7. CYTOGAM [Suspect]
     Active Substance: HUMAN CYTOMEGALOVIRUS IMMUNE GLOBULIN
     Indication: Encephalitis cytomegalovirus
     Dosage: 0.25 G, SOLUTION INTRAVENOUS
     Route: 029
  8. CYTOGAM [Suspect]
     Active Substance: HUMAN CYTOMEGALOVIRUS IMMUNE GLOBULIN
     Dosage: 0.25 MG,INTRAVENOUS
     Route: 037
  9. CYTOGAM [Suspect]
     Active Substance: HUMAN CYTOMEGALOVIRUS IMMUNE GLOBULIN
     Dosage: 0.5 G, SOLUTION INTRAVENOUS
     Route: 029
  10. CYTOGAM [Suspect]
     Active Substance: HUMAN CYTOMEGALOVIRUS IMMUNE GLOBULIN
     Dosage: 0.5 G,INTRAVENOUS
     Route: 037
  11. FOSCARNET SODIUM [Suspect]
     Active Substance: FOSCARNET SODIUM
     Indication: Encephalitis cytomegalovirus
     Dosage: 180 MG/KG
     Route: 042
  12. GANCICLOVIR [Suspect]
     Active Substance: GANCICLOVIR
     Indication: Encephalitis cytomegalovirus
     Dosage: 10 MG/KG, QD, POWDER FOR SOLUTION INTRAVENOUS
     Route: 042
  13. GANCICLOVIR [Suspect]
     Active Substance: GANCICLOVIR
     Dosage: 15 MG/KG, QD
     Route: 042
  14. GANCICLOVIR [Suspect]
     Active Substance: GANCICLOVIR
     Dosage: 5.0 MG/KG, BID,POWDER FOR SOLUTION
     Route: 042
  15. GANCICLOVIR [Suspect]
     Active Substance: GANCICLOVIR
     Dosage: 7.5 MG/KG, BID,POWDER FOR SOLUTION
     Route: 042
  16. RITUXIMAB [Suspect]
     Active Substance: RITUXIMAB
     Indication: Epstein-Barr viraemia
     Dosage: UNK
     Route: 065
  17. THYMOGLOBULIN [Suspect]
     Active Substance: LAPINE T-LYMPHOCYTE IMMUNE GLOBULIN
     Indication: Prophylaxis against graft versus host disease
     Dosage: 2.0 MG/KG, POWDER FOR SOLUTION INTRAVENOUS
     Route: 042
  18. VALGANCICLOVIR [Suspect]
     Active Substance: VALGANCICLOVIR
     Indication: Cytomegalovirus infection reactivation
     Dosage: UNK
     Route: 065
  19. FLUDARABINE [Concomitant]
     Active Substance: FLUDARABINE PHOSPHATE
     Indication: Product used for unknown indication
     Dosage: UNK
     Route: 065
  20. PREVYMIS [Concomitant]
     Active Substance: LETERMOVIR
     Indication: Product used for unknown indication
     Dosage: UNK
     Route: 065

REACTIONS (15)
  - Acute kidney injury [Fatal]
  - BK virus infection [Fatal]
  - Cystitis haemorrhagic [Fatal]
  - Cytomegalovirus infection reactivation [Fatal]
  - Encephalitis cytomegalovirus [Fatal]
  - Epstein-Barr viraemia [Fatal]
  - Generalised oedema [Fatal]
  - Lung disorder [Fatal]
  - Myelosuppression [Fatal]
  - Nephropathy toxic [Fatal]
  - Pancytopenia [Fatal]
  - Respiratory distress [Fatal]
  - Cystitis haemorrhagic [Fatal]
  - Drug ineffective [Fatal]
  - Off label use [Fatal]
